FAERS Safety Report 13630206 (Version 1)
Quarter: 2017Q2

REPORT INFORMATION
  Report Type: Spontaneous
  Country: ES (occurrence: ES)
  Receive Date: 20170608
  Receipt Date: 20170608
  Transmission Date: 20170830
  Serious: Yes (Hospitalization)
  Sender: FDA-Public Use
  Company Number: ES-ABBVIE-17P-144-2001788-00

PATIENT
  Sex: Male

DRUGS (3)
  1. SABRILEX [Concomitant]
     Active Substance: VIGABATRIN
     Indication: PRODUCT USED FOR UNKNOWN INDICATION
  2. VALIUM [Concomitant]
     Active Substance: DIAZEPAM
     Indication: PRODUCT USED FOR UNKNOWN INDICATION
  3. DEPAKINE [Suspect]
     Active Substance: VALPROATE SODIUM
     Indication: INFANTILE SPASMS
     Route: 065
     Dates: end: 201412

REACTIONS (6)
  - Seizure [Unknown]
  - Tachycardia [Unknown]
  - Drug ineffective [Unknown]
  - Toxicity to various agents [Unknown]
  - Decreased activity [Unknown]
  - Somnolence [Unknown]
